FAERS Safety Report 5276030-7 (Version None)
Quarter: 2007Q1

REPORT INFORMATION
  Report Type: 
  Country: None (occurrence: None)
  Receive Date: 20061213
  Receipt Date: 20050916
  Transmission Date: 20070707
  Serious: Yes (Disabling)
  Sender: FDA-Public Use
  Company Number: 2005UW13875

PATIENT
  Sex: Male

DRUGS (2)
  1. SEROQUEL [Suspect]
     Dates: start: 20000201, end: 20030101
  2. ZYPREXA [Suspect]
     Dates: start: 20000201, end: 20030101

REACTIONS (1)
  - DIABETES MELLITUS NON-INSULIN-DEPENDENT [None]
